FAERS Safety Report 5078401-0 (Version None)
Quarter: 2006Q3

REPORT INFORMATION
  Report Type: 
  Country: None (occurrence: None)
  Receive Date: 20060811
  Receipt Date: 20060801
  Transmission Date: 20061208
  Serious: Yes (Hospitalization)
  Sender: FDA-Public Use
  Company Number: DE-ABBOTT-06P-062-0339458-00

PATIENT
  Age: 29 Year
  Sex: Female

DRUGS (4)
  1. REDUCTIL 15MG [Suspect]
     Indication: UNEVALUABLE EVENT
     Route: 048
  2. LAXATIVES [Concomitant]
     Indication: DRUG USE FOR UNKNOWN INDICATION
  3. BENZODIAZEPINES [Concomitant]
     Indication: DRUG USE FOR UNKNOWN INDICATION
  4. UNSPECIFIED MEDICATIONS [Concomitant]
     Indication: DRUG USE FOR UNKNOWN INDICATION

REACTIONS (6)
  - ASTHENIA [None]
  - COMA [None]
  - DRUG ABUSER [None]
  - RENAL IMPAIRMENT [None]
  - SELF-MEDICATION [None]
  - WHEELCHAIR USER [None]
